FAERS Safety Report 7038455 (Version 1)
Quarter: 2020Q3

REPORT INFORMATION
  Report Type: Spontaneous
  Country: AU (occurrence: None)
  Receive Date: 20090622
  Receipt Date: 20090622
  Transmission Date: 20201104
  Serious: Yes (Hospitalization)
  Sender: FDA-Public Use
  Company Number: 297777

PATIENT
  Age: 31 Year
  Sex: Female

DRUGS (7)
  1. METARAMINOL BITARTRATE [Suspect]
     Active Substance: METARAMINOL BITARTRATE
     Indication: SPINAL ANAESTHESIA
     Dosage: 1 MG, INTRAVENOUS
     Route: 042
  2. BUPIVACAINE. [Concomitant]
     Active Substance: BUPIVACAINE
  3. METARAMINOL BITARTRATE [Suspect]
     Active Substance: METARAMINOL BITARTRATE
     Indication: HYPOTENSION
     Dosage: 1 MG, INTRAVENOUS
     Route: 042
  4. MIDAZOLAM HYDROCHLORIDE. [Concomitant]
     Active Substance: MIDAZOLAM HYDROCHLORIDE
  5. EPHEDRINE. [Suspect]
     Active Substance: EPHEDRINE
     Indication: SPINAL ANAESTHESIA
     Dosage: 5 MG, INTRAVENOUS
     Route: 042
  6. EPHEDRINE. [Suspect]
     Active Substance: EPHEDRINE
     Indication: HYPOTENSION
     Dosage: 5 MG, INTRAVENOUS
     Route: 042
  7. (HARTMANN^S SOLUTION) [Concomitant]

REACTIONS (6)
  - Arteriospasm coronary [None]
  - Sinus tachycardia [None]
  - Blood pressure increased [None]
  - Myocardial infarction [None]
  - Anxiety [None]
  - Ventricular extrasystoles [None]
